FAERS Safety Report 7930190-5 (Version None)
Quarter: 2011Q4

REPORT INFORMATION
  Report Type: 
  Country: None (occurrence: None)
  Receive Date: 20111121
  Receipt Date: 20111109
  Transmission Date: 20120403
  Serious: Yes (Hospitalization, Other)
  Sender: FDA-Public Use
  Company Number: US-BAYER-2011-020909

PATIENT
  Sex: Female

DRUGS (2)
  1. YASMIN [Suspect]
     Dosage: UNK
     Dates: start: 20050901, end: 20071201
  2. YAZ [Suspect]
     Dosage: UNK
     Dates: start: 20050901, end: 20071201

REACTIONS (3)
  - PAIN [None]
  - INJURY [None]
  - PNEUMOTHORAX [None]
